FAERS Safety Report 17277658 (Version 4)
Quarter: 2020Q1

REPORT INFORMATION
  Report Type: Spontaneous
  Country: DK (occurrence: DK)
  Receive Date: 20200116
  Receipt Date: 20200211
  Transmission Date: 20200409
  Serious: Yes (Death, Other)
  Sender: FDA-Public Use
  Company Number: NVSC2020DK009693

PATIENT
  Age: 24 Year
  Sex: Male

DRUGS (3)
  1. FLUDARABINE [Concomitant]
     Active Substance: FLUDARABINE PHOSPHATE
     Indication: CHEMOTHERAPY
     Dosage: 30 MG/M2 (FOR 4 DAYS)
     Route: 065
     Dates: start: 20191119, end: 20191122
  2. KYMRIAH [Suspect]
     Active Substance: TISAGENLECLEUCEL
     Indication: ACUTE LYMPHOCYTIC LEUKAEMIA RECURRENT
     Dosage: 1 DF
     Route: 042
     Dates: start: 20191126, end: 20191126
  3. CYCLOPHOSPHAMIDE. [Concomitant]
     Active Substance: CYCLOPHOSPHAMIDE
     Indication: CHEMOTHERAPY
     Dosage: 500 MG/M2 (FOR 2 DAYS)
     Route: 065
     Dates: start: 20191119, end: 20191120

REACTIONS (10)
  - Bronchopulmonary aspergillosis [Fatal]
  - Cytokine release syndrome [Unknown]
  - Hypotension [Unknown]
  - C-reactive protein decreased [Unknown]
  - C-reactive protein increased [Fatal]
  - Acute lymphocytic leukaemia recurrent [Fatal]
  - Influenza [Fatal]
  - Drug ineffective [Fatal]
  - Malignant neoplasm progression [Fatal]
  - Pyrexia [Fatal]

NARRATIVE: CASE EVENT DATE: 20191126
